FAERS Safety Report 7958800-7 (Version None)
Quarter: 2011Q4

REPORT INFORMATION
  Report Type: 
  Country: None (occurrence: None)
  Receive Date: 20111206
  Receipt Date: 20111128
  Transmission Date: 20120403
  Serious: Yes (Hospitalization)
  Sender: FDA-Public Use
  Company Number: US-US-EMD SERONO, INC.-7097214

PATIENT
  Sex: Female
  Weight: 90 kg

DRUGS (3)
  1. REBIF [Suspect]
     Indication: MULTIPLE SCLEROSIS
     Route: 058
     Dates: start: 20040319
  2. BACLOFEN [Concomitant]
  3. IBUPROFEN (ADVIL) [Concomitant]

REACTIONS (15)
  - CENTRAL NERVOUS SYSTEM LESION [None]
  - SKIN INJURY [None]
  - LOSS OF CONSCIOUSNESS [None]
  - PAIN IN EXTREMITY [None]
  - LIPOMA [None]
  - HYPERTENSION [None]
  - WEIGHT DECREASED [None]
  - MUSCLE SPASMS [None]
  - INJECTION SITE ERYTHEMA [None]
  - FATIGUE [None]
  - BLOOD GLUCOSE ABNORMAL [None]
  - NAUSEA [None]
  - ARTHRALGIA [None]
  - FALL [None]
  - PAIN [None]
